FAERS Safety Report 9925056 (Version 1)
Quarter: 2014Q1

REPORT INFORMATION
  Report Type: Spontaneous
  Country: US (occurrence: US)
  Receive Date: 20140226
  Receipt Date: 20140226
  Transmission Date: 20141002
  Serious: Yes (Other)
  Sender: FDA-Public Use
  Company Number: US-ACTAVIS-2014-02999

PATIENT
  Sex: Male

DRUGS (3)
  1. DULOXETINE HYDROCHLORIDE (AELLC) [Suspect]
     Indication: DEPRESSED MOOD
     Route: 065
  2. DULOXETINE HYDROCHLORIDE (AELLC) [Suspect]
     Indication: BACK PAIN
  3. BUPRENORPHINE W/NALOXONE [Concomitant]
     Indication: DRUG DEPENDENCE
     Dosage: 8/2 MG/DAILY
     Route: 065

REACTIONS (1)
  - Sexual dysfunction [Unknown]
